FAERS Safety Report 8604381-4 (Version None)
Quarter: 2012Q3

REPORT INFORMATION
  Report Type: 
  Country: None (occurrence: None)
  Receive Date: 20120820
  Receipt Date: 20120809
  Transmission Date: 20120928
  Serious: Yes (Other)
  Sender: FDA-Public Use
  Company Number: US-BAYER-2012-036518

PATIENT
  Age: 16 Year
  Sex: Female
  Weight: 113.38 kg

DRUGS (11)
  1. LEVOTHYROXINE SODIUM [Concomitant]
     Dosage: UNK
     Dates: start: 20090101
  2. MAGNESIUM HYDROXIDE TAB [Concomitant]
  3. PEPCID [Concomitant]
  4. PHENTERMINE [Concomitant]
     Dosage: 37.5 MG, UNK
  5. NEXIUM [Concomitant]
  6. PHENERGAN HCL [Concomitant]
  7. PERCOCET [Concomitant]
  8. CARAFATE [Concomitant]
  9. YAZ [Suspect]
     Indication: CONTRACEPTION
     Dosage: UNK
     Dates: start: 20090327, end: 20100109
  10. ZITHROMAX [Concomitant]
  11. IMODIUM [Concomitant]

REACTIONS (11)
  - CHOLECYSTITIS ACUTE [None]
  - INJURY [None]
  - DYSPEPSIA [None]
  - CONSTIPATION [None]
  - EMOTIONAL DISTRESS [None]
  - DIARRHOEA [None]
  - SCAR [None]
  - ANXIETY [None]
  - CHOLECYSTECTOMY [None]
  - ABDOMINAL DISTENSION [None]
  - DEPRESSION [None]
